FAERS Safety Report 9695343 (Version 1)
Quarter: 2013Q4

REPORT INFORMATION
  Report Type: Spontaneous
  Country: US (occurrence: None)
  Receive Date: 20131118
  Receipt Date: 20131118
  Transmission Date: 20140711
  Serious: Yes (Life-Threatening)
  Sender: FDA-Public Use
  Company Number: None

PATIENT
  Sex: 0

DRUGS (2)
  1. ANASTROZOLE [Suspect]
     Indication: HORMONE THERAPY
     Dosage: 1
     Route: 048
     Dates: start: 20130909, end: 20131111
  2. ANASTROZOLE [Suspect]
     Indication: BREAST CANCER
     Dosage: 1
     Route: 048
     Dates: start: 20130909, end: 20131111

REACTIONS (4)
  - Recurrent cancer [None]
  - Joint stiffness [None]
  - Abdominal discomfort [None]
  - Vision blurred [None]
